FAERS Safety Report 15555819 (Version 2)
Quarter: 2018Q4

REPORT INFORMATION
  Report Type: Spontaneous
  Country: ID (occurrence: ID)
  Receive Date: 20181026
  Receipt Date: 20181101
  Transmission Date: 20190205
  Serious: Yes (Death, Other)
  Sender: FDA-Public Use
  Company Number: ID-SAKK-2018SA292036AA

PATIENT
  Age: 40 Year
  Sex: Female

DRUGS (4)
  1. CEDOCARD [Concomitant]
     Active Substance: ISOSORBIDE DINITRATE
     Route: 048
  2. LOVENOX [Suspect]
     Active Substance: ENOXAPARIN SODIUM
     Indication: ACUTE CORONARY SYNDROME
     Dosage: 0.6 MG/TWICE DAILY
     Route: 058
     Dates: start: 20181019, end: 20181020
  3. ASPILETS [Concomitant]
     Active Substance: ASPIRIN
     Route: 048
  4. CLOPIDOGREL [Concomitant]
     Active Substance: CLOPIDOGREL BISULFATE
     Route: 048

REACTIONS (2)
  - Menstrual disorder [Fatal]
  - Death [Fatal]

NARRATIVE: CASE EVENT DATE: 20181019
